FAERS Safety Report 18971267 (Version 1)
Quarter: 2021Q1

REPORT INFORMATION
  Report Type: Spontaneous
  Country: US (occurrence: US)
  Receive Date: 20210305
  Receipt Date: 20210305
  Transmission Date: 20210420
  Serious: Yes (Other)
  Sender: FDA-Public Use
  Company Number: US-COEPTIS PHARMACEUTICALS, INC.-COE-2021-000025

PATIENT
  Age: 28 Year
  Sex: Female

DRUGS (3)
  1. CYCLOBENZAPRINE. [Suspect]
     Active Substance: CYCLOBENZAPRINE
  2. TIZANIDINE. [Suspect]
     Active Substance: TIZANIDINE
  3. CELECOXIB. [Suspect]
     Active Substance: CELECOXIB

REACTIONS (1)
  - Acute febrile neutrophilic dermatosis [Recovering/Resolving]
